FAERS Safety Report 6604845-9 (Version None)
Quarter: 2010Q1

REPORT INFORMATION
  Report Type: 
  Country: None (occurrence: None)
  Receive Date: 20100226
  Receipt Date: 20100219
  Transmission Date: 20100710
  Serious: Yes (Other)
  Sender: FDA-Public Use
  Company Number: A0845588A

PATIENT
  Sex: Female

DRUGS (1)
  1. ALLI [Suspect]
     Indication: WEIGHT LOSS DIET
     Route: 048
     Dates: start: 20080101

REACTIONS (5)
  - ABDOMINAL PAIN UPPER [None]
  - CHANGE OF BOWEL HABIT [None]
  - DRUG INEFFECTIVE [None]
  - INTESTINAL OBSTRUCTION [None]
  - WEIGHT INCREASED [None]
